FAERS Safety Report 9444746 (Version 2)
Quarter: 2013Q3

REPORT INFORMATION
  Report Type: Report from Study
  Country: US (occurrence: US)
  Receive Date: 20130807
  Receipt Date: 20130816
  Transmission Date: 20140515
  Serious: Yes (Other)
  Sender: FDA-Public Use
  Company Number: PHEH2013US016366

PATIENT
  Age: 53 Year
  Sex: Female
  Weight: 98.87 kg

DRUGS (5)
  1. GILENYA [Suspect]
     Indication: MULTIPLE SCLEROSIS
     Dosage: 0.5 MG, QD
     Route: 048
     Dates: start: 20130731
  2. ZANAFLEX [Concomitant]
     Indication: MUSCLE SPASMS
     Dosage: 1 DF, PRN
     Route: 048
     Dates: start: 2013
  3. ZYRTEC [Concomitant]
     Indication: HYPERSENSITIVITY
     Dosage: 1 DF, QD
     Route: 048
     Dates: start: 2013
  4. BENADRYL [Concomitant]
     Indication: HYPERSENSITIVITY
     Dosage: 1 DF, Q4H
     Route: 048
     Dates: start: 2013
  5. SOLU-MEDROL [Concomitant]
     Indication: MULTIPLE SCLEROSIS
     Dosage: UNK
     Route: 042
     Dates: start: 2013

REACTIONS (2)
  - Electrocardiogram abnormal [Recovering/Resolving]
  - Atrioventricular block second degree [Recovered/Resolved]
